FAERS Safety Report 7114396-3 (Version None)
Quarter: 2010Q4

REPORT INFORMATION
  Report Type: 
  Country: None (occurrence: None)
  Receive Date: 20101119
  Receipt Date: 20101105
  Transmission Date: 20110411
  Serious: No
  Sender: FDA-Public Use
  Company Number: AT-ELI_LILLY_AND_COMPANY-AT201009006972

PATIENT
  Age: 31 Year
  Sex: Male

DRUGS (4)
  1. CYMBALTA [Suspect]
     Dosage: 90 MG, UNK
  2. ABILIFY [Concomitant]
     Dosage: 30 D/F, UNK
  3. ZELDOX [Concomitant]
     Dosage: 60 UNK, UNK
  4. TRAZODONE HCL [Concomitant]
     Dosage: 50 UNK, UNK

REACTIONS (3)
  - ALANINE AMINOTRANSFERASE INCREASED [None]
  - ASPARTATE AMINOTRANSFERASE INCREASED [None]
  - GAMMA-GLUTAMYLTRANSFERASE INCREASED [None]
